FAERS Safety Report 19679615 (Version 1)
Quarter: 2021Q3

REPORT INFORMATION
  Report Type: Spontaneous
  Country: US (occurrence: US)
  Receive Date: 20210809
  Receipt Date: 20210809
  Transmission Date: 20211014
  Serious: Yes (Death, Hospitalization)
  Sender: FDA-Public Use
  Company Number: US-PRINSTON PHARMACEUTICAL INC.-2021PRN00284

PATIENT
  Age: 19 Year
  Sex: Female

DRUGS (4)
  1. BUPROPION HYDROCHLORIDE. [Suspect]
     Active Substance: BUPROPION HYDROCHLORIDE
     Dosage: UNKNOWN
     Route: 065
  2. BUPROPION HYDROCHLORIDE. [Suspect]
     Active Substance: BUPROPION HYDROCHLORIDE
     Dosage: UNSPECIFIED; HAD BEEN REFILLED WITH 200 TABLETS 13 DAYS PRIOR
     Route: 048
  3. OXCARBAZEPINE. [Suspect]
     Active Substance: OXCARBAZEPINE
     Dosage: UNKNOWN
     Route: 065
  4. OXCARBAZEPINE. [Suspect]
     Active Substance: OXCARBAZEPINE
     Dosage: UNSPECIFIED AMOUNT
     Route: 048

REACTIONS (7)
  - Completed suicide [Fatal]
  - Overdose [Fatal]
  - Seizure [Not Recovered/Not Resolved]
  - Cardiac arrest [Fatal]
  - Electrocardiogram QT prolonged [Not Recovered/Not Resolved]
  - Bundle branch block left [Not Recovered/Not Resolved]
  - Cardiogenic shock [Fatal]
